FAERS Safety Report 7338432-4 (Version None)
Quarter: 2011Q1

REPORT INFORMATION
  Report Type: 
  Country: None (occurrence: None)
  Receive Date: 20110308
  Receipt Date: 20110225
  Transmission Date: 20110831
  Serious: Yes (Hospitalization)
  Sender: FDA-Public Use
  Company Number: AR-JNJFOC-20080703032

PATIENT
  Sex: Male

DRUGS (35)
  1. GOLIMUMAB [Suspect]
     Route: 058
  2. GOLIMUMAB [Suspect]
     Route: 058
  3. METHOTREXATE [Suspect]
     Route: 048
  4. ENALAPRIL MALEATE [Concomitant]
     Route: 048
  5. GOLIMUMAB [Suspect]
     Route: 058
  6. GOLIMUMAB [Suspect]
     Route: 058
  7. GOLIMUMAB [Suspect]
     Route: 058
  8. GOLIMUMAB [Suspect]
     Route: 058
  9. GOLIMUMAB [Suspect]
     Route: 058
  10. GOLIMUMAB [Suspect]
     Route: 058
  11. GOLIMUMAB [Suspect]
     Route: 058
  12. METHOTREXATE [Suspect]
     Route: 048
  13. METHOTREXATE [Concomitant]
     Dosage: WEEK 52 AND WEEK 53
     Route: 048
  14. GOLIMUMAB [Suspect]
     Indication: RHEUMATOID ARTHRITIS
     Route: 058
  15. GOLIMUMAB [Suspect]
     Route: 058
  16. METHOTREXATE [Suspect]
     Route: 048
  17. METHOTREXATE [Concomitant]
     Dosage: WEEK 58 TO WEEK 65
     Route: 048
  18. ASPIRIN [Concomitant]
     Route: 048
  19. DICLOFENAC [Concomitant]
     Route: 048
  20. METHOTREXATE [Suspect]
     Dosage: WEEK 51
     Route: 048
  21. ATENOLOL [Concomitant]
     Route: 048
  22. GOLIMUMAB [Suspect]
     Route: 058
  23. GOLIMUMAB [Suspect]
     Route: 058
  24. GOLIMUMAB [Suspect]
     Route: 058
  25. GOLIMUMAB [Suspect]
     Route: 058
  26. GOLIMUMAB [Suspect]
     Route: 058
  27. GOLIMUMAB [Suspect]
     Route: 058
  28. GOLIMUMAB [Suspect]
     Route: 058
  29. GOLIMUMAB [Suspect]
     Route: 058
  30. GOLIMUMAB [Suspect]
     Route: 058
  31. GOLIMUMAB [Suspect]
     Route: 058
  32. METHOTREXATE [Suspect]
     Indication: RHEUMATOID ARTHRITIS
     Route: 048
  33. METHOTREXATE [Suspect]
     Route: 048
  34. METHOTREXATE [Suspect]
     Route: 048
  35. SIMVASTATIN [Concomitant]
     Route: 048

REACTIONS (2)
  - URINARY TRACT INFECTION [None]
  - ORCHITIS [None]
